FAERS Safety Report 12595717 (Version 1)
Quarter: 2016Q3

REPORT INFORMATION
  Report Type: Spontaneous
  Country: US (occurrence: US)
  Receive Date: 20160727
  Receipt Date: 20160727
  Transmission Date: 20161109
  Serious: No
  Sender: FDA-Public Use
  Company Number: US-GLENMARK PHARMACEUTICALS INC, USA.-2016GMK022780

PATIENT

DRUGS (1)
  1. MUPIROCIN. [Suspect]
     Active Substance: MUPIROCIN
     Indication: PAIN IN EXTREMITY
     Dosage: ONE APPLICATION TWICE DAILY
     Route: 061
     Dates: start: 201602

REACTIONS (4)
  - Condition aggravated [Recovered/Resolved]
  - Drug prescribing error [Unknown]
  - Drug ineffective [Unknown]
  - Pain in extremity [Recovered/Resolved]
